FAERS Safety Report 8314447-4 (Version None)
Quarter: 2012Q2

REPORT INFORMATION
  Report Type: 
  Country: None (occurrence: None)
  Receive Date: 20120426
  Receipt Date: 20120425
  Transmission Date: 20120825
  Serious: Yes (Hospitalization)
  Sender: FDA-Public Use
  Company Number: PL-ROCHE-1059395

PATIENT
  Sex: Female
  Weight: 60 kg

DRUGS (2)
  1. COPEGUS [Suspect]
     Indication: HEPATITIS C
     Route: 048
     Dates: start: 20101117, end: 20111020
  2. PEGASYS [Suspect]
     Indication: HEPATITIS C
     Route: 058
     Dates: start: 20101117, end: 20111014

REACTIONS (3)
  - DERMATITIS ALLERGIC [None]
  - RASH MACULAR [None]
  - RASH GENERALISED [None]
